FAERS Safety Report 5711519-5 (Version None)
Quarter: 2008Q2

REPORT INFORMATION
  Report Type: 
  Country: None (occurrence: None)
  Receive Date: 20080421
  Receipt Date: 20080417
  Transmission Date: 20081010
  Serious: Yes (Death)
  Sender: FDA-Public Use
  Company Number: CH-BRISTOL-MYERS SQUIBB COMPANY-14156749

PATIENT
  Age: 74 Year
  Sex: Female
  Weight: 48 kg

DRUGS (7)
  1. TAXOL [Suspect]
     Indication: BREAST CANCER IN SITU
     Dosage: GF: INFUSION AMPOULES,STRENGTH:30MG,INFUSIONSKONZENTRAT
     Route: 040
     Dates: start: 20080319, end: 20080319
  2. HERCEPTIN [Suspect]
     Indication: BREAST CANCER IN SITU
     Dosage: GF:AMPOULES,STRENGTH:440MG, LYOPHILISAT 440MG,SUSP INGRED: ACTIVE INGREDIENT
     Route: 040
     Dates: start: 20080318, end: 20080318
  3. DEXAMETHASONE TAB [Suspect]
     Indication: BREAST CANCER IN SITU
     Dosage: SUSP INGRED: ACTIVE INGREDIENT
     Route: 048
     Dates: start: 20080318, end: 20080319
  4. PREDNISONE [Suspect]
     Indication: PEMPHIGOID
     Dosage: STREULI 5MG TABLETTEN,GF:TABLETS,STRENGTH:5MG,SUSP INGRED: ACTIVE INGREDIENT
     Route: 048
     Dates: start: 20080201, end: 20080324
  5. AZATHIOPRINE [Concomitant]
     Indication: PEMPHIGOID
     Dosage: IMUREK,GF:COATED TABLETS FILM,STRENGTH:50MG
     Route: 048
     Dates: start: 20080201, end: 20080324
  6. TAVEGYL [Concomitant]
     Indication: CHEMOTHERAPY
     Dosage: GF: VIALS
     Route: 040
     Dates: start: 20080318, end: 20080319
  7. ZOFRAN [Concomitant]
     Indication: CHEMOTHERAPY
     Dosage: GF:INFUSION AMPOULES
     Route: 040
     Dates: start: 20080319, end: 20080319

REACTIONS (4)
  - ANAEMIA [None]
  - CEREBRAL HAEMORRHAGE [None]
  - INTRAVENTRICULAR HAEMORRHAGE [None]
  - MENTAL DISORDER [None]
